FAERS Safety Report 9723073 (Version 1)
Quarter: 2013Q4

REPORT INFORMATION
  Report Type: Spontaneous
  Country: US (occurrence: US)
  Receive Date: 20131202
  Receipt Date: 20131202
  Transmission Date: 20140711
  Serious: Yes (Other)
  Sender: FDA-Public Use
  Company Number: US-BAYER-2013-144895

PATIENT
  Age: 56 Year
  Sex: Male

DRUGS (3)
  1. BAYER GENUINE ASPIRIN ORIGINAL STRENGTH [Suspect]
     Indication: ISCHAEMIC HEART DISEASE PROPHYLAXIS
     Dosage: 1 DF, QD
     Route: 048
  2. BAYER ASPIRIN REGIMEN ADULT LOW STRENGTH [Suspect]
     Indication: ISCHAEMIC HEART DISEASE PROPHYLAXIS
     Dosage: 2 DF, QD
     Route: 048
  3. BAYER ASPIRIN REGIMEN ADULT LOW STRENGTH [Suspect]
     Indication: CORONARY ARTERY DISEASE

REACTIONS (3)
  - Vomiting [Recovered/Resolved]
  - Myocardial infarction [None]
  - Off label use [None]
